FAERS Safety Report 6158052-7 (Version None)
Quarter: 2009Q2

REPORT INFORMATION
  Report Type: 
  Country: None (occurrence: None)
  Receive Date: 20090417
  Receipt Date: 20090406
  Transmission Date: 20091009
  Serious: Yes (Hospitalization)
  Sender: FDA-Public Use
  Company Number: JP-PFIZER INC-2009195586

PATIENT

DRUGS (4)
  1. AROMASIN [Suspect]
     Dosage: 25 MG, 1X/DAY
     Route: 048
     Dates: end: 20090401
  2. DOGMATYL [Suspect]
     Dosage: 50 MG, 1X/DAY
     Route: 048
  3. PAXIL [Suspect]
     Dosage: 20 MG, 1X/DAY
     Route: 048
  4. DEPAS [Suspect]
     Dosage: 0.5 MG, 1X/DAY
     Route: 048

REACTIONS (1)
  - LIVER FUNCTION TEST ABNORMAL [None]
